FAERS Safety Report 12925216 (Version 1)
Quarter: 2016Q4

REPORT INFORMATION
  Report Type: Report from Study
  Country: US (occurrence: US)
  Receive Date: 20161109
  Receipt Date: 20161109
  Transmission Date: 20170207
  Serious: Yes (Hospitalization, Other)
  Sender: FDA-Public Use
  Company Number: US-GILEAD-2016-0241921

PATIENT
  Age: 77 Year
  Sex: Male

DRUGS (2)
  1. RANOLAZINE [Suspect]
     Active Substance: RANOLAZINE
     Indication: ANGINA PECTORIS
     Dosage: 1000 MG, BID
     Route: 048
  2. RANOLAZINE [Suspect]
     Active Substance: RANOLAZINE
     Dosage: 1000 MG IN AM AND 500 MG IN PM
     Route: 048

REACTIONS (5)
  - Dizziness [Unknown]
  - Stent placement [Recovered/Resolved]
  - Cardiac complication associated with device [Unknown]
  - Dyspnoea [Unknown]
  - Intentional product use issue [Recovered/Resolved]
